FAERS Safety Report 21743431 (Version 3)
Quarter: 2024Q4

REPORT INFORMATION
  Report Type: Spontaneous
  Country: US (occurrence: US)
  Receive Date: 20221217
  Receipt Date: 20241003
  Transmission Date: 20250114
  Serious: Yes (Death)
  Sender: NOVARTIS
  Company Number: US-002147023-NVSC2022US291985

PATIENT
  Age: 18 Year
  Sex: Female
  Weight: 49.7 kg

DRUGS (3)
  1. MEKINIST [Suspect]
     Active Substance: TRAMETINIB DIMETHYL SULFOXIDE
     Indication: Brain neoplasm malignant
     Dosage: 2 MG, QD
     Route: 048
     Dates: start: 20220818, end: 20221208
  2. TEMOZOLOMIDE [Concomitant]
     Active Substance: TEMOZOLOMIDE
     Indication: Product used for unknown indication
     Dosage: 125 MG (EVERY 28 DAYS) (X 5 D)
     Route: 048
  3. OLAPARIB [Concomitant]
     Active Substance: OLAPARIB
     Indication: Product used for unknown indication
     Dosage: 150 MG (M-F)
     Route: 065

REACTIONS (5)
  - Brain neoplasm malignant [Fatal]
  - Malignant neoplasm progression [Fatal]
  - Glioma [Fatal]
  - Oligodendroglioma [Fatal]
  - Off label use [Unknown]

NARRATIVE: CASE EVENT DATE: 20220818
